FAERS Safety Report 8037593-1 (Version None)
Quarter: 2012Q1

REPORT INFORMATION
  Report Type: 
  Country: None (occurrence: None)
  Receive Date: 20120111
  Receipt Date: 20120105
  Transmission Date: 20120608
  Serious: Yes (Hospitalization)
  Sender: FDA-Public Use
  Company Number: US-ABBOTT-10P-163-0677990-00

PATIENT
  Sex: Female
  Weight: 86.26 kg

DRUGS (5)
  1. HUMIRA [Suspect]
     Indication: CROHN'S DISEASE
     Dates: start: 20080101, end: 20080701
  2. HUMIRA [Suspect]
     Dates: start: 20080101, end: 20091001
  3. UNKNOWN OTC SLEEP AID [Concomitant]
     Indication: INSOMNIA
  4. AMBIEN [Concomitant]
     Indication: INSOMNIA
  5. HUMIRA [Suspect]
     Dates: start: 20090101

REACTIONS (3)
  - INJECTION SITE DISCOMFORT [None]
  - CROHN'S DISEASE [None]
  - COLONIC STENOSIS [None]
